FAERS Safety Report 4795460-0 (Version None)
Quarter: 2005Q4

REPORT INFORMATION
  Report Type: 
  Country: None (occurrence: None)
  Receive Date: 20051006
  Receipt Date: 20050628
  Transmission Date: 20060501
  Serious: Yes (Other)
  Sender: FDA-Public Use
  Company Number: 805#1#2005-00050

PATIENT
  Age: 69 Year
  Sex: Female

DRUGS (11)
  1. ALPROSTADIL [Suspect]
     Indication: ARTERIOSCLEROSIS OBLITERANS
     Dosage: 120 MCG (60 MCG 2 IN 1 DAY (S) ) INTRAVENOUS DRIP
     Route: 041
     Dates: start: 20050615, end: 20050616
  2. ALPROSTADIL [Suspect]
     Indication: ARTERIOSCLEROSIS OBLITERANS
     Dosage: 120 MCG (60 MCG 2 IN 1 DAY (S) ) INTRAVENOUS DRIP
     Route: 041
     Dates: start: 20040622, end: 20050710
  3. SODIUM BICARBONATE IN PLASTIC CONTAINER [Concomitant]
  4. EXTRACT-FROM INFLAMMATORY-RABBIT-SKIN-INOCULATED-BY VACCINIA-VIRUS (OR [Concomitant]
  5. ALLOPURINOL [Concomitant]
  6. FUROSEMIDE [Concomitant]
  7. SPIRONOLACTONE [Concomitant]
  8. SODIUM REBEPRAZOLE (RABEPRAZOLE SODIUM) [Concomitant]
  9. QUAZEPAM [Concomitant]
  10. HYDROCORTISONE (ESCHERICHIA COLI, LYOPHILIZED, HYDROCORTISONE, LANOLIN [Concomitant]
  11. SODIUM FERROUS CITRATE (FERROUS CITRATE) [Concomitant]

REACTIONS (5)
  - ANAEMIA [None]
  - DIABETIC NEPHROPATHY [None]
  - NEPHROGENIC ANAEMIA [None]
  - PLEURAL EFFUSION [None]
  - RECTAL ULCER HAEMORRHAGE [None]
